FAERS Safety Report 7755011-5 (Version None)
Quarter: 2011Q3

REPORT INFORMATION
  Report Type: 
  Country: None (occurrence: None)
  Receive Date: 20110916
  Receipt Date: 20110907
  Transmission Date: 20111222
  Serious: Yes (Other)
  Sender: FDA-Public Use
  Company Number: US-AMGEN-USASP2011045963

PATIENT
  Age: 42 Year
  Sex: Male

DRUGS (8)
  1. DILTIAZEM [Concomitant]
  2. EPOGEN [Suspect]
     Indication: RENAL FAILURE CHRONIC
     Dosage: UNK UNK, 3 TIMES/WK
  3. COREG [Concomitant]
  4. OMEPRAZOLE [Concomitant]
  5. PHOSLO [Concomitant]
  6. AMLODIPINE [Concomitant]
  7. LISINOPRIL [Concomitant]
  8. LIPITOR [Concomitant]

REACTIONS (1)
  - APLASIA PURE RED CELL [None]
